FAERS Safety Report 8435220-2 (Version None)
Quarter: 2012Q2

REPORT INFORMATION
  Report Type: 
  Country: None (occurrence: None)
  Receive Date: 20120608
  Receipt Date: 20120608
  Transmission Date: 20120825
  Serious: Yes (Other)
  Sender: FDA-Public Use
  Company Number: None

PATIENT
  Age: 47 Year
  Sex: Female
  Weight: 65.7716 kg

DRUGS (1)
  1. ZOLPIDEM [Suspect]
     Indication: INSOMNIA
     Dosage: 1 PER DAY 4 OUT OF 7 DAYS
     Dates: start: 20110111, end: 20120601

REACTIONS (6)
  - HEART RATE INCREASED [None]
  - WEIGHT DECREASED [None]
  - DYSPNOEA [None]
  - DEPRESSION [None]
  - CHEST PAIN [None]
  - HYPOAESTHESIA [None]
